FAERS Safety Report 8596220-5 (Version None)
Quarter: 2012Q3

REPORT INFORMATION
  Report Type: 
  Country: None (occurrence: None)
  Receive Date: 20120815
  Receipt Date: 20120808
  Transmission Date: 20120928
  Serious: Yes (Other)
  Sender: FDA-Public Use
  Company Number: GB-VIIV HEALTHCARE LIMITED-B0821971A

PATIENT

DRUGS (2)
  1. MARAVIROC [Suspect]
     Indication: HIV INFECTION
     Route: 065
  2. DARUNAVIR ETHANOLATE [Suspect]
     Indication: HIV INFECTION
     Route: 065

REACTIONS (2)
  - NERVOUS SYSTEM DISORDER [None]
  - ENCEPHALITIS [None]
